FAERS Safety Report 6349643-9 (Version None)
Quarter: 2009Q3

REPORT INFORMATION
  Report Type: 
  Country: None (occurrence: None)
  Receive Date: 20090911
  Receipt Date: 20090901
  Transmission Date: 20100115
  Serious: Yes (Hospitalization)
  Sender: FDA-Public Use
  Company Number: FR-ELI_LILLY_AND_COMPANY-FR200904004643

PATIENT
  Age: 61 Year
  Sex: Female
  Weight: 109 kg

DRUGS (1)
  1. FORTEO [Suspect]
     Indication: OSTEOPOROSIS
     Dosage: 20 UG, DAILY (1/D)
     Route: 065
     Dates: start: 20080101, end: 20090701

REACTIONS (4)
  - CLUMSINESS [None]
  - FALL [None]
  - HUMERUS FRACTURE [None]
  - UPPER LIMB FRACTURE [None]
